FAERS Safety Report 13571233 (Version 2)
Quarter: 2017Q2

REPORT INFORMATION
  Report Type: Spontaneous
  Country: IT (occurrence: IT)
  Receive Date: 20170523
  Receipt Date: 20170608
  Transmission Date: 20170830
  Serious: Yes (Hospitalization)
  Sender: FDA-Public Use
  Company Number: IT-ASTRAZENECA-2017SE52858

PATIENT
  Age: 23604 Day
  Sex: Male
  Weight: 102 kg

DRUGS (10)
  1. CITALOPRAM [Concomitant]
     Active Substance: CITALOPRAM HYDROBROMIDE
     Dosage: 20.0MG UNKNOWN
  2. PANTORC [Concomitant]
     Active Substance: PANTOPRAZOLE SODIUM
     Route: 065
  3. PLAVIX [Concomitant]
     Active Substance: CLOPIDOGREL BISULFATE
     Route: 065
  4. TOTALIP [Concomitant]
     Active Substance: ATORVASTATIN
     Route: 065
  5. XIGDUO XR [Suspect]
     Active Substance: DAPAGLIFLOZIN PROPANEDIOL\METFORMIN HYDROCHLORIDE
     Indication: DIABETES MELLITUS
     Dosage: 5 MG/1000 MG, 2 DOSAGE UNITS/DAY
     Route: 048
     Dates: start: 20170112, end: 20170504
  6. CONGESCOR [Concomitant]
     Active Substance: BISOPROLOL
     Route: 065
  7. LASIX [Concomitant]
     Active Substance: FUROSEMIDE
     Route: 065
  8. LEVEMIR [Concomitant]
     Active Substance: INSULIN DETEMIR
  9. CARDIOASPIRIN [Concomitant]
     Active Substance: ASPIRIN
     Route: 065
  10. PLAUNAC [Concomitant]
     Active Substance: OLMESARTAN MEDOXOMIL
     Route: 065

REACTIONS (1)
  - Renal abscess [Recovering/Resolving]

NARRATIVE: CASE EVENT DATE: 20170504
